FAERS Safety Report 6321501-5 (Version None)
Quarter: 2009Q3

REPORT INFORMATION
  Report Type: 
  Country: None (occurrence: None)
  Receive Date: 20090824
  Receipt Date: 20090819
  Transmission Date: 20100115
  Serious: Yes (Hospitalization)
  Sender: FDA-Public Use
  Company Number: US-BIOGENIDEC-2009BI016007

PATIENT
  Age: 37 Year
  Sex: Female

DRUGS (2)
  1. TYSABRI [Suspect]
     Indication: MULTIPLE SCLEROSIS
     Route: 042
     Dates: start: 20070928, end: 20071216
  2. TYSABRI [Suspect]
     Route: 042
     Dates: start: 20081209

REACTIONS (3)
  - PULMONARY EMBOLISM [None]
  - PYREXIA [None]
  - SEPTIC SHOCK [None]
